FAERS Safety Report 12543152 (Version 1)
Quarter: 2016Q3

REPORT INFORMATION
  Report Type: Report from Study
  Country: BR (occurrence: BR)
  Receive Date: 20160711
  Receipt Date: 20160711
  Transmission Date: 20161109
  Serious: Yes (Hospitalization)
  Sender: FDA-Public Use
  Company Number: BR-ROCHE-1461508

PATIENT
  Age: 60 Year
  Sex: Female
  Weight: 56 kg

DRUGS (6)
  1. MABTHERA [Suspect]
     Active Substance: RITUXIMAB
     Indication: RHEUMATOID ARTHRITIS
     Dosage: LAST INFUSION ON : 01-NOV-2015.
     Route: 042
     Dates: start: 20140224
  2. CELEBRA [Concomitant]
     Active Substance: CELECOXIB
  3. ATORVASTATIN [Concomitant]
     Active Substance: ATORVASTATIN
  4. MABTHERA [Suspect]
     Active Substance: RITUXIMAB
     Route: 042
     Dates: start: 20140922
  5. DEFLAZACORT [Concomitant]
     Active Substance: DEFLAZACORT
  6. CITALOPRAM [Concomitant]
     Active Substance: CITALOPRAM HYDROBROMIDE

REACTIONS (10)
  - Sinusitis [Unknown]
  - Sensory disturbance [Unknown]
  - Dizziness [Unknown]
  - Hypersensitivity [Recovered/Resolved]
  - Immunodeficiency [Unknown]
  - Gastroenteritis [Unknown]
  - Arthropathy [Recovering/Resolving]
  - Headache [Unknown]
  - Confusional state [Not Recovered/Not Resolved]
  - Pain [Not Recovered/Not Resolved]

NARRATIVE: CASE EVENT DATE: 20140903
